FAERS Safety Report 7961014-8 (Version None)
Quarter: 2011Q4

REPORT INFORMATION
  Report Type: 
  Country: None (occurrence: None)
  Receive Date: 20111201
  Receipt Date: 20111201
  Transmission Date: 20120403
  Serious: Yes (Hospitalization)
  Sender: FDA-Public Use
  Company Number: None

PATIENT
  Age: 64 Year
  Sex: Male
  Weight: 83.9154 kg

DRUGS (3)
  1. MOVE FREE - GLUCOSAMINE/CONDROTIN 1500/1200 MG. SCHIFF [Suspect]
     Indication: ARTHRALGIA
     Dosage: 2 TABLETS 1X DAILY ORALLY
     Route: 048
     Dates: end: 20070701
  2. MOVE FREE - GLUCOSAMINE/CONDROTIN 1500/1200 MG. SCHIF [Suspect]
  3. MOVE FREE - GLUCOSAMINE/CONDROTIN 1500/2011 MG SCHIFF [Suspect]
     Indication: ARTHRALGIA
     Dosage: 2 TABLETS 1X DAILY ORALLY
     Route: 048
     Dates: start: 20110901

REACTIONS (5)
  - VOMITING [None]
  - DIARRHOEA [None]
  - DEHYDRATION [None]
  - BLOOD TEST ABNORMAL [None]
  - ABDOMINAL DISCOMFORT [None]
